FAERS Safety Report 7780994-7 (Version None)
Quarter: 2011Q3

REPORT INFORMATION
  Report Type: 
  Country: None (occurrence: None)
  Receive Date: 20110927
  Receipt Date: 20110912
  Transmission Date: 20111222
  Serious: Yes (Other)
  Sender: FDA-Public Use
  Company Number: PHHY2011BR82525

PATIENT
  Age: 63 Year
  Sex: Female
  Weight: 98 kg

DRUGS (21)
  1. RASILEZ [Suspect]
     Dosage: 150 MG, UNK
     Dates: start: 20081001
  2. CLOPIDOGREL [Concomitant]
     Dosage: 75 MG, UNK
     Dates: start: 20110101
  3. APIDRA [Concomitant]
     Dosage: 4 IU, 4 IU BEFORE LUNCH AND 4 IU BEFORE DINNER
     Dates: start: 20110101
  4. CARVEDILOL [Suspect]
     Dosage: 50 MG, UNK
     Dates: start: 20081001
  5. CAPTOPRIL [Suspect]
     Dosage: 150 MG, UNK
  6. SIMVASTATIN [Suspect]
     Dosage: 40 MG, UNK
     Dates: start: 20110101
  7. FUROSEMIDE [Suspect]
     Dosage: 240 MG, UNK
  8. NPH INSULIN [Suspect]
     Dosage: 72 IU, DAILY
  9. GALVUS [Concomitant]
     Dosage: 100 MG, UNK
     Dates: start: 20110101
  10. AMLODIPINE BESYLATE [Suspect]
     Dosage: 10 MG, UNK
  11. SIMVASTATIN [Suspect]
     Dosage: 20 MG, UNK
  12. LANTUS [Concomitant]
     Dosage: 28 IU, UNK
     Dates: start: 20110101
  13. SPIRONOLACTONE [Suspect]
     Dosage: 25 MG, UNK
     Dates: start: 20110101
  14. RASILEZ [Suspect]
     Dosage: 300 MG, UNK
     Dates: start: 20081201
  15. FUROSEMIDE [Suspect]
     Dosage: 80 MG, UNK
     Dates: start: 20110101
  16. ALLOPURINOL [Concomitant]
     Dosage: 300 MG, UNK
     Dates: start: 20110101
  17. DIOVAN [Suspect]
     Dosage: 160 MG, UNK
     Dates: start: 20081001
  18. ISOSORBIDE MONONITRATE [Suspect]
     Dosage: 60 MG, UNK
  19. GLIBENCLAMIDE W/METFORMIN HYDROCHLORIDE [Suspect]
  20. CARVEDILOL [Suspect]
     Dosage: 12.5 MG, DAILY
     Dates: start: 20070501
  21. SPIRONOLACTONE [Suspect]
     Dosage: 50 MG, UNK

REACTIONS (17)
  - BLOOD CHOLESTEROL INCREASED [None]
  - CREATININE RENAL CLEARANCE DECREASED [None]
  - GAMMA-GLUTAMYLTRANSFERASE INCREASED [None]
  - BODY MASS INDEX INCREASED [None]
  - BLOOD URIC ACID INCREASED [None]
  - BRAIN NATRIURETIC PEPTIDE INCREASED [None]
  - BLOOD POTASSIUM INCREASED [None]
  - BLOOD PRESSURE SYSTOLIC INCREASED [None]
  - HAEMOGLOBIN DECREASED [None]
  - BLOOD GLUCOSE INCREASED [None]
  - GLYCOSYLATED HAEMOGLOBIN INCREASED [None]
  - BLOOD CREATINE PHOSPHOKINASE INCREASED [None]
  - BLOOD UREA INCREASED [None]
  - BLOOD TRIGLYCERIDES INCREASED [None]
  - C-REACTIVE PROTEIN INCREASED [None]
  - PROTEINURIA [None]
  - BLOOD CREATININE INCREASED [None]
